FAERS Safety Report 11893688 (Version 2)
Quarter: 2016Q1

REPORT INFORMATION
  Report Type: Spontaneous
  Country: JP (occurrence: JP)
  Receive Date: 20160106
  Receipt Date: 20160111
  Transmission Date: 20160526
  Serious: Yes (Death)
  Sender: FDA-Public Use
  Company Number: JP-BAXTER-2016BAX000044

PATIENT
  Age: 91 Year
  Sex: Male

DRUGS (2)
  1. REGUNEAL LCA 2.5 PERITONEAL DIALYSIS SOLUTION [Suspect]
     Active Substance: CALCIUM CHLORIDE\DEXTROSE MONOHYDRATE\HYDROCHLORIC ACID\MAGNESIUM CHLORIDE\SODIUM BICARBONATE\SODIUM CHLORIDE\SODIUM HYDROXIDE\SODIUM LACTATE
     Indication: CHRONIC KIDNEY DISEASE
     Route: 033
     Dates: end: 20160102
  2. REGUNEAL LCA 1.5 PERITONEAL DIALYSIS SOLUTION [Suspect]
     Active Substance: CALCIUM CHLORIDE\DEXTROSE MONOHYDRATE\HYDROCHLORIC ACID\MAGNESIUM CHLORIDE\SODIUM BICARBONATE\SODIUM CHLORIDE\SODIUM HYDROXIDE\SODIUM LACTATE
     Indication: CHRONIC KIDNEY DISEASE
     Route: 033
     Dates: end: 20160102

REACTIONS (1)
  - Marasmus [Fatal]
